FAERS Safety Report 22641639 (Version 2)
Quarter: 2023Q2

REPORT INFORMATION
  Report Type: Report from Study
  Country: US (occurrence: US)
  Receive Date: 20230626
  Receipt Date: 20230630
  Transmission Date: 20230721
  Serious: Yes (Hospitalization)
  Sender: FDA-Public Use
  Company Number: US-PFIZER INC-PV202300106112

PATIENT
  Age: 62 Year
  Sex: Male
  Weight: 84.5 kg

DRUGS (2)
  1. INOTUZUMAB OZOGAMICIN [Suspect]
     Active Substance: INOTUZUMAB OZOGAMICIN
     Indication: B precursor type acute leukaemia
     Dosage: 0.8 MG/M2, CYCLIC (ON DAY 1 AND 0.5 MG/M2 IV ON DAYS 8 AND 15)
     Route: 042
     Dates: start: 20200910
  2. INOTUZUMAB OZOGAMICIN [Suspect]
     Active Substance: INOTUZUMAB OZOGAMICIN
     Dosage: 0.5 MG/M2, CYCLIC (ON DAYS 1, 8, AND 15)
     Route: 042

REACTIONS (2)
  - Depressed level of consciousness [Recovered/Resolved]
  - Neutropenia [Recovered/Resolved]

NARRATIVE: CASE EVENT DATE: 20200915
